FAERS Safety Report 4277564-4 (Version None)
Quarter: 2004Q1

REPORT INFORMATION
  Report Type: 
  Country: None (occurrence: None)
  Receive Date: 20040121
  Receipt Date: 20040121
  Transmission Date: 20041129
  Serious: No
  Sender: FDA-Public Use
  Company Number: None

PATIENT
  Sex: Male

DRUGS (6)
  1. SERTRALINE HCL [Suspect]
     Indication: DEPRESSION
     Dosage: 100 MG PO
     Route: 048
     Dates: start: 20031126, end: 20031208
  2. ACYCLOVIR [Concomitant]
  3. DOCUSATE [Concomitant]
  4. FILGRASTIM [Concomitant]
  5. MAGNESIUM OXIDE [Concomitant]
  6. KCL TAB [Concomitant]

REACTIONS (4)
  - JAW DISORDER [None]
  - MOVEMENT DISORDER [None]
  - PAIN IN JAW [None]
  - RESTLESSNESS [None]
